FAERS Safety Report 7984279-5 (Version None)
Quarter: 2011Q4

REPORT INFORMATION
  Report Type: 
  Country: None (occurrence: None)
  Receive Date: 20111214
  Receipt Date: 20111123
  Transmission Date: 20120403
  Serious: Yes (Other)
  Sender: FDA-Public Use
  Company Number: 2011-3674

PATIENT
  Age: 49 Year
  Sex: Female
  Weight: 55.8 kg

DRUGS (7)
  1. FISH OIL (FISH OIL) [Concomitant]
  2. DYSPORT [Suspect]
     Indication: SKIN WRINKLING
     Dosage: 85 UNITS (85 UNITS,SINGLE CYCLE)
     Dates: start: 20110823, end: 20110823
  3. DYSPORT [Suspect]
     Indication: SKIN COSMETIC PROCEDURE
     Dosage: 85 UNITS (85 UNITS,SINGLE CYCLE)
     Dates: start: 20110823, end: 20110823
  4. DYSPORT [Suspect]
     Indication: OFF LABEL USE
     Dosage: 85 UNITS (85 UNITS,SINGLE CYCLE)
     Dates: start: 20110823, end: 20110823
  5. PRILOSEC [Concomitant]
  6. MULTIVITAMINS (MULTIVITAMIN /00831701/) [Concomitant]
  7. CALCIUM W/VITAMIN D NOS (VITACAL) [Concomitant]

REACTIONS (5)
  - DIZZINESS [None]
  - PRODUCT QUALITY ISSUE [None]
  - OFF LABEL USE [None]
  - ANGIOEDEMA [None]
  - WRONG TECHNIQUE IN DRUG USAGE PROCESS [None]
